FAERS Safety Report 6108187-X (Version None)
Quarter: 2009Q1

REPORT INFORMATION
  Report Type: 
  Country: None (occurrence: None)
  Receive Date: 20090309
  Receipt Date: 20090224
  Transmission Date: 20090719
  Serious: Yes (Other)
  Sender: FDA-Public Use
  Company Number: CA-ROCHE-606866

PATIENT
  Sex: Male

DRUGS (2)
  1. PEGASYS [Suspect]
     Indication: HEPATITIS C
     Route: 058
     Dates: end: 20080101
  2. COPEGUS [Suspect]
     Indication: HEPATITIS C
     Route: 048
     Dates: end: 20080101

REACTIONS (1)
  - ABORTION [None]
